FAERS Safety Report 19910194 (Version 2)
Quarter: 2021Q4

REPORT INFORMATION
  Report Type: Spontaneous
  Country: CN (occurrence: CN)
  Receive Date: 20211003
  Receipt Date: 20211206
  Transmission Date: 20220303
  Serious: Yes (Other)
  Sender: FDA-Public Use
  Company Number: CN-NOVARTISPH-NVSC2021CN222560

PATIENT
  Sex: Male
  Weight: 2.3 kg

DRUGS (9)
  1. SACUBITRIL\VALSARTAN [Suspect]
     Active Substance: SACUBITRIL\VALSARTAN
     Indication: Foetal exposure during pregnancy
     Dosage: MATERNAL DOSE: 100 MG, BID
     Route: 064
  2. ISOSORBIDE MONONITRATE [Suspect]
     Active Substance: ISOSORBIDE MONONITRATE
     Indication: Foetal exposure during pregnancy
     Dosage: MATERNAL DOSE: 20 MG, BID
     Route: 064
  3. FUROSEMIDE [Suspect]
     Active Substance: FUROSEMIDE
     Indication: Foetal exposure during pregnancy
     Dosage: MATERNAL DOSE: 20 MG BID
     Route: 064
  4. TORSEMIDE [Suspect]
     Active Substance: TORSEMIDE
     Indication: Foetal exposure during pregnancy
     Dosage: MATERNAL DOSE: 20 MG ST IVGTT
     Route: 064
  5. SPIRONOLACTONE [Suspect]
     Active Substance: SPIRONOLACTONE
     Indication: Foetal exposure during pregnancy
     Dosage: MATERNAL DOSE: 20 MG BID
     Route: 064
  6. METOPROLOL [Suspect]
     Active Substance: METOPROLOL
     Indication: Foetal exposure during pregnancy
     Dosage: MATERNAL DOSE: 23.75 MG QD
     Route: 064
  7. CEFTIZOXIME [Suspect]
     Active Substance: CEFTIZOXIME
     Indication: Foetal exposure during pregnancy
     Dosage: MATERNAL DOSE: 2 G Q12 H IVGTT
     Route: 064
  8. GLUTATHIONE [Suspect]
     Active Substance: GLUTATHIONE
     Indication: Foetal exposure during pregnancy
     Dosage: MATERNAL DOSE: 2.4 G QD IVGTT
     Route: 064
  9. HEPARIN SODIUM [Suspect]
     Active Substance: HEPARIN SODIUM
     Indication: Foetal exposure during pregnancy
     Dosage: MATERNAL DOSE: 12 500 U QW IVGTT
     Route: 064

REACTIONS (2)
  - Premature baby [Unknown]
  - Foetal exposure during pregnancy [Unknown]
